FAERS Safety Report 10498142 (Version 1)
Quarter: 2014Q4

REPORT INFORMATION
  Report Type: Spontaneous
  Country: GB (occurrence: GB)
  Receive Date: 20141006
  Receipt Date: 20141006
  Transmission Date: 20150528
  Serious: Yes (Death, Other)
  Sender: FDA-Public Use
  Company Number: GB-TEVA-511715ISR

PATIENT
  Age: 47 Year
  Sex: Female

DRUGS (6)
  1. LEVOTHYROXINE [Concomitant]
     Active Substance: LEVOTHYROXINE
     Indication: HYPOTHYROIDISM
     Dosage: RECENTLY INCREASED
  2. CITALOPRAM [Concomitant]
     Active Substance: CITALOPRAM HYDROBROMIDE
     Indication: DEPRESSION
  3. PROPRANOLOL [Suspect]
     Active Substance: PROPRANOLOL\PROPRANOLOL HYDROCHLORIDE
     Indication: ANXIETY
  4. VALDOXAN [Suspect]
     Active Substance: AGOMELATINE
     Indication: DEPRESSION
     Route: 048
     Dates: start: 20130204, end: 20130224
  5. VALDOXAN [Suspect]
     Active Substance: AGOMELATINE
     Indication: DEPRESSION
     Route: 048
     Dates: start: 20130114, end: 20130203
  6. SODIUM VALPROATE [Concomitant]
     Active Substance: VALPROATE SODIUM
     Dates: start: 20111010

REACTIONS (6)
  - Road traffic accident [Fatal]
  - Vomiting [Not Recovered/Not Resolved]
  - Status epilepticus [Fatal]
  - Toxicity to various agents [Fatal]
  - Abdominal discomfort [Not Recovered/Not Resolved]
  - Overdose [Fatal]

NARRATIVE: CASE EVENT DATE: 20130224
